FAERS Safety Report 10554079 (Version 2)
Quarter: 2015Q1

REPORT INFORMATION
  Report Type: Spontaneous
  Country: FR (occurrence: FR)
  Receive Date: 20141030
  Receipt Date: 20150102
  Transmission Date: 20150720
  Serious: Yes (Death)
  Sender: FDA-Public Use
  Company Number: FR-JNJFOC-20141013608

PATIENT
  Age: 94 Year
  Sex: Female

DRUGS (2)
  1. HALDOL [Suspect]
     Active Substance: HALOPERIDOL
     Indication: VOMITING
     Route: 030
     Dates: start: 20141019
  2. FLUINDIONE [Concomitant]
     Active Substance: FLUINDIONE
     Route: 065

REACTIONS (1)
  - Death [Fatal]
